FAERS Safety Report 20815988 (Version 7)
Quarter: 2023Q2

REPORT INFORMATION
  Report Type: Report from Study
  Country: CA (occurrence: CA)
  Receive Date: 20220511
  Receipt Date: 20230630
  Transmission Date: 20230722
  Serious: Yes (Hospitalization)
  Sender: FDA-Public Use
  Company Number: CA-HORIZON THERAPEUTICS-HZN-2022-003134

PATIENT

DRUGS (8)
  1. RAVICTI [Suspect]
     Active Substance: GLYCEROL PHENYLBUTYRATE
     Indication: Urea cycle disorder
     Dosage: 0.7 ML, TID
     Route: 065
     Dates: start: 20220322
  2. RAVICTI [Suspect]
     Active Substance: GLYCEROL PHENYLBUTYRATE
     Dosage: 0.9 ML, TID
     Route: 065
     Dates: start: 20220322
  3. RAVICTI [Suspect]
     Active Substance: GLYCEROL PHENYLBUTYRATE
     Dosage: 0.8 ML, TID
     Route: 065
     Dates: start: 20220620
  4. RAVICTI [Suspect]
     Active Substance: GLYCEROL PHENYLBUTYRATE
     Dosage: 0.8 ML, TID
     Route: 065
     Dates: start: 20220622
  5. RAVICTI [Suspect]
     Active Substance: GLYCEROL PHENYLBUTYRATE
     Dosage: 0.9 ML, TID
     Route: 065
     Dates: start: 2022
  6. AMMONUL [Concomitant]
     Active Substance: SODIUM BENZOATE\SODIUM PHENYLACETATE
     Indication: Ammonia increased
  7. ARGININE [Concomitant]
     Active Substance: ARGININE
     Indication: Product used for unknown indication
  8. KEPPRA [Concomitant]
     Active Substance: LEVETIRACETAM
     Indication: Seizure
     Dosage: UNK UNK, BID

REACTIONS (6)
  - Hypophagia [Unknown]
  - Vomiting [Recovered/Resolved]
  - Pyrexia [Recovered/Resolved]
  - Influenza [Recovered/Resolved]
  - Ear infection [Recovered/Resolved]
  - Nasopharyngitis [Recovered/Resolved]

NARRATIVE: CASE EVENT DATE: 20221201
